FAERS Safety Report 13812342 (Version 1)
Quarter: 2017Q3

REPORT INFORMATION
  Report Type: Report from Study
  Country: US (occurrence: US)
  Receive Date: 20170728
  Receipt Date: 20170728
  Transmission Date: 20171127
  Serious: No
  Sender: FDA-Public Use
  Company Number: US-AMGEN-USASL2017095642

PATIENT
  Age: 55 Year
  Sex: Male

DRUGS (3)
  1. ZYRTEC [Concomitant]
     Active Substance: CETIRIZINE HYDROCHLORIDE
     Indication: HYPERSENSITIVITY
     Dosage: 10 MG, QD
     Dates: start: 2010
  2. REPATHA [Suspect]
     Active Substance: EVOLOCUMAB
     Indication: TYPE IIA HYPERLIPIDAEMIA
     Dosage: 140 MG, Q2WK
     Route: 058
     Dates: start: 20170615
  3. ROBAXIN [Concomitant]
     Active Substance: METHOCARBAMOL
     Indication: PAIN
     Dosage: 750 MG, UNK
     Dates: start: 2015

REACTIONS (1)
  - Nasal congestion [Recovered/Resolved]

NARRATIVE: CASE EVENT DATE: 20170620
